FAERS Safety Report 6007866-2 (Version None)
Quarter: 2008Q4

REPORT INFORMATION
  Report Type: 
  Country: None (occurrence: None)
  Receive Date: 20081217
  Receipt Date: 20080707
  Transmission Date: 20090506
  Serious: No
  Sender: FDA-Public Use
  Company Number: US-ASTRAZENECA-2008UW13585

PATIENT
  Age: 75 Year
  Sex: Male
  Weight: 78.5 kg

DRUGS (9)
  1. CRESTOR [Suspect]
     Indication: HIGH DENSITY LIPOPROTEIN
     Dosage: 1/2 TAB
     Route: 048
     Dates: end: 20070101
  2. TEKTURNA [Concomitant]
  3. NIASPAN 2000MG QD [Concomitant]
  4. METOPROLOL TARTRATE [Concomitant]
  5. PLAVIX [Concomitant]
  6. ASPIRIN [Concomitant]
  7. CLONAZEPAM [Concomitant]
  8. CITALOPRAM [Concomitant]
  9. PRAVASTATIN [Concomitant]

REACTIONS (3)
  - DIARRHOEA [None]
  - FLATULENCE [None]
  - PAIN IN EXTREMITY [None]
